FAERS Safety Report 17534121 (Version 1)
Quarter: 2020Q1

REPORT INFORMATION
  Report Type: Spontaneous
  Country: US (occurrence: US)
  Receive Date: 20200312
  Receipt Date: 20200312
  Transmission Date: 20200409
  Serious: No
  Sender: FDA-Public Use
  Company Number: US-GALDERMA-US19077006

PATIENT
  Age: 53 Year
  Sex: Female

DRUGS (3)
  1. ALMAY EYE MAKEUP REMOVER [Concomitant]
     Indication: PRODUCT USED FOR UNKNOWN INDICATION
  2. MOISTURIZER (UNSPECIFIED) [Concomitant]
     Indication: PRODUCT USED FOR UNKNOWN INDICATION
     Route: 065
  3. TRI-LUMA [Suspect]
     Active Substance: FLUOCINOLONE ACETONIDE\HYDROQUINONE\TRETINOIN
     Indication: CHLOASMA
     Dosage: 30 GRAMS
     Route: 061
     Dates: start: 20191208, end: 201912

REACTIONS (3)
  - Skin burning sensation [Recovering/Resolving]
  - Erythema [Recovering/Resolving]
  - Pain of skin [Recovering/Resolving]

NARRATIVE: CASE EVENT DATE: 201912
